FAERS Safety Report 18471712 (Version 7)
Quarter: 2021Q2

REPORT INFORMATION
  Report Type: Report from Study
  Country: US (occurrence: US)
  Receive Date: 20201105
  Receipt Date: 20210621
  Transmission Date: 20210717
  Serious: Yes (Hospitalization, Other)
  Sender: FDA-Public Use
  Company Number: US-TAKEDA-2020TUS044458

PATIENT
  Age: 27 Year
  Sex: Male

DRUGS (1)
  1. HUMAN NORMAL IMMUNOGLOBULIN; LIQUID [Suspect]
     Active Substance: HUMAN IMMUNOGLOBULIN G
     Indication: IMMUNODEFICIENCY COMMON VARIABLE
     Dosage: UNK
     Route: 042

REACTIONS (14)
  - Fatigue [Unknown]
  - Diarrhoea [Unknown]
  - Fall [Unknown]
  - Dry mouth [Unknown]
  - Productive cough [Unknown]
  - Pneumonia [Unknown]
  - Suicide attempt [Recovered/Resolved]
  - Illness [Unknown]
  - Multiple allergies [Unknown]
  - Insurance issue [Unknown]
  - Oropharyngeal pain [Unknown]
  - Ligament sprain [Unknown]
  - Post-traumatic stress disorder [Unknown]
  - Road traffic accident [Unknown]

NARRATIVE: CASE EVENT DATE: 202006
